FAERS Safety Report 5518206-7 (Version None)
Quarter: 2007Q4

REPORT INFORMATION
  Report Type: 
  Country: None (occurrence: None)
  Receive Date: 20071115
  Receipt Date: 20071107
  Transmission Date: 20080405
  Serious: Yes (Other)
  Sender: FDA-Public Use
  Company Number: PHBS2007JP17946

PATIENT
  Age: 83 Year
  Sex: Female

DRUGS (4)
  1. MIKELAN (NVO) [Suspect]
     Indication: OCULAR HYPERTENSION
     Dosage: UNK, UNK
     Dates: start: 20070901, end: 20070901
  2. SODIUM HYALURONATE [Concomitant]
     Dates: start: 20070901, end: 20070901
  3. GATIFLOXACIN [Concomitant]
     Dates: start: 20070901, end: 20070901
  4. CARBAZOCHROME SODIUM SULFONATE [Concomitant]
     Route: 048
     Dates: start: 20070901, end: 20070901

REACTIONS (4)
  - APHASIA [None]
  - BLOOD PRESSURE DECREASED [None]
  - HEART RATE DECREASED [None]
  - MOBILITY DECREASED [None]
